FAERS Safety Report 6903565-0 (Version None)
Quarter: 2010Q3

REPORT INFORMATION
  Report Type: 
  Country: None (occurrence: None)
  Receive Date: 20100708
  Receipt Date: 20090813
  Transmission Date: 20110219
  Serious: Yes (Other)
  Sender: FDA-Public Use
  Company Number: 2009209818

PATIENT
  Age: 39 Year
  Sex: Female
  Weight: 95.7 kg

DRUGS (4)
  1. CHANTIX [Suspect]
     Dosage: 0.5 MG, 1X/DAY
     Dates: start: 20090501
  2. SPIRONOLACTONE [Concomitant]
  3. LYRICA [Concomitant]
  4. GLUCOSAMINE (GLUCOSAMINE) [Concomitant]

REACTIONS (1)
  - SUICIDAL IDEATION [None]
